FAERS Safety Report 21760283 (Version 1)
Quarter: 2022Q4

REPORT INFORMATION
  Report Type: Spontaneous
  Country: US (occurrence: None)
  Receive Date: 20221220
  Receipt Date: 20221220
  Transmission Date: 20230112
  Serious: No
  Sender: FDA-Public Use
  Company Number: None

PATIENT
  Sex: Female

DRUGS (2)
  1. VELETRI [Suspect]
     Active Substance: EPOPROSTENOL
     Indication: Pulmonary arterial hypertension
     Dosage: OTHER QUANTITY : 40NG/KG/MIN;?FREQUENCY : AS DIRECTED;?
     Route: 042
     Dates: start: 20210813
  2. DEVICE [Suspect]
     Active Substance: DEVICE

REACTIONS (2)
  - Product quality issue [None]
  - Dyspnoea [None]
